FAERS Safety Report 17543671 (Version 1)
Quarter: 2020Q1

REPORT INFORMATION
  Report Type: Spontaneous
  Country: DE (occurrence: DE)
  Receive Date: 20200316
  Receipt Date: 20200316
  Transmission Date: 20200409
  Serious: Yes (Hospitalization)
  Sender: FDA-Public Use
  Company Number: DE-TEVA-2020-DE-1201647

PATIENT
  Age: 81 Year
  Sex: Female

DRUGS (7)
  1. METOPROLOL. [Concomitant]
     Active Substance: METOPROLOL
     Dosage: 190 MILLIGRAM DAILY; 95 MG, 1-0-1-0
  2. CLEXANE 4000I.E. (40MG)/0,4ML INJEKTIONSL?SUNG [Concomitant]
     Dosage: .8 ML DAILY;  1-0-1-0; FORM STRENGTH : 4000I.E. (40MG) / 0.4ML
  3. ALLOPURINOL. [Concomitant]
     Active Substance: ALLOPURINOL
     Dosage: 100 MG, 0-0-0.75-0
  4. CANDESARTAN. [Suspect]
     Active Substance: CANDESARTAN
     Dosage: 8 MILLIGRAM DAILY;  1-0-0-0
     Route: 065
  5. PREDNISOLON [Suspect]
     Active Substance: PREDNISOLONE
     Route: 065
  6. PHENPROCOUMON [Concomitant]
     Active Substance: PHENPROCOUMON
     Dosage: 3 MG, BY VALUE
  7. CETUXIMAB. [Suspect]
     Active Substance: CETUXIMAB
     Route: 065

REACTIONS (7)
  - General physical health deterioration [Unknown]
  - Fatigue [Unknown]
  - Gastrointestinal stoma complication [Unknown]
  - Diarrhoea [Unknown]
  - Nausea [Unknown]
  - Dysuria [Unknown]
  - Decreased appetite [Unknown]
